FAERS Safety Report 8044579-X (Version None)
Quarter: 2012Q1

REPORT INFORMATION
  Report Type: 
  Country: None (occurrence: None)
  Receive Date: 20120113
  Receipt Date: 20120113
  Transmission Date: 20120608
  Serious: Yes (Death, Life-Threatening, Hospitalization)
  Sender: FDA-Public Use
  Company Number: None

PATIENT
  Age: 61 Year
  Sex: Male
  Weight: 79.378 kg

DRUGS (3)
  1. LEUCOVORIN CALCIUM [Concomitant]
  2. FLUOROURACIL [Concomitant]
  3. BEVACIZUMAB [Suspect]
     Indication: COLON CANCER METASTATIC
     Dosage: 5MG/KG
     Route: 042
     Dates: start: 20110318, end: 20110614

REACTIONS (3)
  - MEGACOLON [None]
  - INFECTIOUS PERITONITIS [None]
  - INTESTINAL PERFORATION [None]
